FAERS Safety Report 4809053-X (Version None)
Quarter: 2005Q4

REPORT INFORMATION
  Report Type: 
  Country: None (occurrence: None)
  Receive Date: 20051021
  Receipt Date: 20050120
  Transmission Date: 20060501
  Serious: Yes (Other)
  Sender: FDA-Public Use
  Company Number: CA_050107678

PATIENT
  Age: 48 Year
  Sex: Male

DRUGS (1)
  1. ZYPREXA [Suspect]
     Indication: BIPOLAR DISORDER
     Dosage: 30 MG
     Dates: start: 20040801

REACTIONS (2)
  - PRESCRIBED OVERDOSE [None]
  - PULMONARY EMBOLISM [None]
